FAERS Safety Report 8220974-0 (Version None)
Quarter: 2012Q1

REPORT INFORMATION
  Report Type: 
  Country: None (occurrence: None)
  Receive Date: 20120320
  Receipt Date: 20120316
  Transmission Date: 20120608
  Serious: Yes (Death)
  Sender: FDA-Public Use
  Company Number: LB-SANOFI-AVENTIS-2012SA018083

PATIENT
  Age: 72 Year
  Sex: Male
  Weight: 73.5 kg

DRUGS (6)
  1. LEUCOVORIN CALCIUM [Suspect]
     Route: 042
     Dates: start: 20120206, end: 20120206
  2. FLUOROURACIL [Suspect]
     Route: 042
     Dates: start: 20120206, end: 20120206
  3. LEUCOVORIN CALCIUM [Suspect]
     Route: 042
  4. OXALIPLATIN [Suspect]
     Route: 042
     Dates: start: 20120206, end: 20120206
  5. OXALIPLATIN [Suspect]
     Route: 042
  6. FLUOROURACIL [Suspect]
     Route: 042

REACTIONS (1)
  - SUDDEN DEATH [None]
